FAERS Safety Report 24598867 (Version 1)
Quarter: 2024Q4

REPORT INFORMATION
  Report Type: Spontaneous
  Country: US (occurrence: US)
  Receive Date: 20241110
  Receipt Date: 20241110
  Transmission Date: 20250115
  Serious: No
  Sender: SANOFI AVENTIS
  Company Number: US-SANOFI-02274943

PATIENT
  Age: 53 Year
  Sex: Male

DRUGS (1)
  1. LANTUS SOLOSTAR [Suspect]
     Active Substance: INSULIN GLARGINE
     Indication: Diabetes mellitus
     Dosage: 21 UNITS 21 UNITS ON AVERAGE BUT THAT IT VARIES DEPENDING ON BLOOD SUGARS, THAT HE IS ON A SLIDING S
     Route: 058
     Dates: start: 2023

REACTIONS (2)
  - Fear of injection [Unknown]
  - Intentional product misuse [Unknown]
